FAERS Safety Report 8120179-8 (Version None)
Quarter: 2012Q1

REPORT INFORMATION
  Report Type: 
  Country: None (occurrence: None)
  Receive Date: 20120207
  Receipt Date: 20120201
  Transmission Date: 20120608
  Serious: No
  Sender: FDA-Public Use
  Company Number: US-BAYER-2012-012108

PATIENT
  Age: 7 Year
  Sex: Female
  Weight: 22.676 kg

DRUGS (1)
  1. ASPIRIN [Suspect]
     Indication: PYREXIA
     Dosage: 1 U, ONCE
     Route: 048
     Dates: start: 20120201, end: 20120201

REACTIONS (1)
  - NO ADVERSE EVENT [None]
